FAERS Safety Report 20685402 (Version 10)
Quarter: 2024Q1

REPORT INFORMATION
  Report Type: Report from Study
  Country: IN (occurrence: IN)
  Receive Date: 20220407
  Receipt Date: 20240117
  Transmission Date: 20240410
  Serious: Yes (Other)
  Sender: FDA-Public Use
  Company Number: IN-002147023-NVSC2021IN302498

PATIENT

DRUGS (15)
  1. RUXOLITINIB [Suspect]
     Active Substance: RUXOLITINIB
     Indication: Primary myelofibrosis
     Dosage: 5 MG, BID
     Route: 048
     Dates: start: 20210128
  2. RUXOLITINIB [Suspect]
     Active Substance: RUXOLITINIB
     Dosage: 10 MG, BID
     Route: 048
     Dates: start: 20210211, end: 20210215
  3. RUXOLITINIB [Suspect]
     Active Substance: RUXOLITINIB
     Dosage: 5 MG, BID
     Route: 065
     Dates: start: 20210211, end: 20210527
  4. RUXOLITINIB [Suspect]
     Active Substance: RUXOLITINIB
     Dosage: 15 MG OTHER (5 MG IN MORNING AND 10 MG IN EVENING)
     Route: 065
     Dates: start: 20210528, end: 20210818
  5. RUXOLITINIB [Suspect]
     Active Substance: RUXOLITINIB
     Dosage: 15 MG OTHER (10 MG BD AND 5 MG BD ON ALTERNATIVE DAYDA)
     Route: 065
     Dates: start: 20210819, end: 20220105
  6. RUXOLITINIB [Suspect]
     Active Substance: RUXOLITINIB
     Dosage: 10 MG, BID
     Route: 065
     Dates: start: 20220106, end: 20220323
  7. RUXOLITINIB [Suspect]
     Active Substance: RUXOLITINIB
     Dosage: 10 MG, BID
     Route: 065
     Dates: start: 20220324
  8. RUXOLITINIB [Suspect]
     Active Substance: RUXOLITINIB
     Dosage: 10 MG, BID
     Route: 065
     Dates: start: 20220609
  9. RUXOLITINIB [Suspect]
     Active Substance: RUXOLITINIB
     Dosage: 10 MG, BID
     Route: 065
     Dates: start: 20220908
  10. RUXOLITINIB [Suspect]
     Active Substance: RUXOLITINIB
     Dosage: 10 MG, BID
     Route: 065
     Dates: start: 20221114
  11. RUXOLITINIB [Suspect]
     Active Substance: RUXOLITINIB
     Dosage: 5 MG, BID (TWICE A DAY)
     Route: 065
     Dates: start: 20230227
  12. RUXOLITINIB [Suspect]
     Active Substance: RUXOLITINIB
     Dosage: 5 MG, BID
     Route: 065
     Dates: start: 20230327
  13. RUXOLITINIB [Suspect]
     Active Substance: RUXOLITINIB
     Dosage: 5 MG, BID
     Route: 048
     Dates: start: 20230427
  14. RUXOLITINIB [Suspect]
     Active Substance: RUXOLITINIB
     Dosage: 5 MG, BID
     Route: 048
     Dates: start: 20230608
  15. RUXOLITINIB [Suspect]
     Active Substance: RUXOLITINIB
     Dosage: 5 MG, BID
     Route: 065
     Dates: start: 20230831

REACTIONS (26)
  - Wrong technique in product usage process [Unknown]
  - Pain [Unknown]
  - Early satiety [Unknown]
  - Splenomegaly [Unknown]
  - Epistaxis [Unknown]
  - Fatigue [Unknown]
  - Fungal infection [Unknown]
  - Haemorrhage subcutaneous [Unknown]
  - Hepatomegaly [Recovered/Resolved]
  - Hepatic enzyme increased [Recovering/Resolving]
  - Blood potassium increased [Recovering/Resolving]
  - Blood triglycerides increased [Unknown]
  - Hyperthyroidism [Unknown]
  - Hyperuricaemia [Unknown]
  - Hypothyroidism [Unknown]
  - Liver disorder [Recovering/Resolving]
  - Pyrexia [Unknown]
  - Haemoglobin decreased [Unknown]
  - Platelet count decreased [Unknown]
  - Spleen disorder [Recovering/Resolving]
  - Pallor [Unknown]
  - Pain in extremity [Unknown]
  - Herpes zoster [Unknown]
  - Urinary tract infection [Unknown]
  - Asthenia [Unknown]
  - Weight decreased [Unknown]

NARRATIVE: CASE EVENT DATE: 20210211
